FAERS Safety Report 5604749-4 (Version None)
Quarter: 2008Q1

REPORT INFORMATION
  Report Type: 
  Country: None (occurrence: None)
  Receive Date: 20080128
  Receipt Date: 20080122
  Transmission Date: 20080703
  Serious: Yes (Other)
  Sender: FDA-Public Use
  Company Number: PHFR2008GB00670

PATIENT
  Age: 14 Year
  Sex: Female

DRUGS (1)
  1. CARBAMAZEPINE [Suspect]
     Indication: AFFECTIVE DISORDER
     Dosage: 7.5 ML, BID
     Route: 048
     Dates: start: 20051116, end: 20051215

REACTIONS (8)
  - ABDOMINAL PAIN UPPER [None]
  - DRY MOUTH [None]
  - EAR INFECTION [None]
  - OTORRHOEA [None]
  - PRURITUS [None]
  - RASH GENERALISED [None]
  - SWELLING [None]
  - WOUND SECRETION [None]
